FAERS Safety Report 23168155 (Version 2)
Quarter: 2023Q4

REPORT INFORMATION
  Report Type: Spontaneous
  Country: JP (occurrence: JP)
  Receive Date: 20231109
  Receipt Date: 20231211
  Transmission Date: 20240109
  Serious: Yes (Other)
  Sender: FDA-Public Use
  Company Number: JP-TAKEDA-2023TJP014726

PATIENT
  Age: 74 Year
  Sex: Female

DRUGS (7)
  1. ENTYVIO [Suspect]
     Active Substance: VEDOLIZUMAB
     Indication: Colitis ulcerative
     Dosage: 300 MILLIGRAM
     Route: 041
     Dates: start: 20230502
  2. LIALDA [Concomitant]
     Active Substance: MESALAMINE
     Dosage: 2400 MILLIGRAM
     Route: 065
  3. AZATHIOPRINE [Concomitant]
     Active Substance: AZATHIOPRINE
     Dosage: 50 MILLIGRAM
     Route: 065
  4. NEXIUM [Concomitant]
     Active Substance: ESOMEPRAZOLE MAGNESIUM
     Dosage: 20 MILLIGRAM
     Route: 065
  5. MOSAPRIDE CITRATE [Concomitant]
     Active Substance: MOSAPRIDE CITRATE
     Dosage: 15 MILLIGRAM, TID
     Route: 065
  6. MARZULENE [Concomitant]
     Dosage: 2 DOSAGE FORM, TID
     Route: 065
  7. BIO-THREE [Concomitant]
     Active Substance: HERBALS
     Dosage: 3 DOSAGE FORM, TID
     Route: 065

REACTIONS (1)
  - Hepatic function abnormal [Recovered/Resolved]

NARRATIVE: CASE EVENT DATE: 20231010
